FAERS Safety Report 7101629-2 (Version None)
Quarter: 2010Q4

REPORT INFORMATION
  Report Type: 
  Country: None (occurrence: None)
  Receive Date: 20101115
  Receipt Date: 20101108
  Transmission Date: 20110411
  Serious: Yes (Hospitalization)
  Sender: FDA-Public Use
  Company Number: US-B.I. PHARMACEUTICALS,INC./RIDGEFIELD-2010-BP-12513BP

PATIENT
  Sex: Female

DRUGS (2)
  1. COMBIVENT [Suspect]
     Indication: CHRONIC OBSTRUCTIVE PULMONARY DISEASE
     Dosage: 9 PUF
     Route: 055
     Dates: start: 20101001, end: 20101103
  2. COMBIVENT [Suspect]
     Dosage: 8 PUF
     Route: 055
     Dates: start: 20101103

REACTIONS (1)
  - DYSPNOEA [None]
